FAERS Safety Report 14702982 (Version 1)
Quarter: 2018Q2

REPORT INFORMATION
  Report Type: Spontaneous
  Country: FR (occurrence: FR)
  Receive Date: 20180402
  Receipt Date: 20180402
  Transmission Date: 20180711
  Serious: Yes (Other)
  Sender: FDA-Public Use
  Company Number: FR-MERCK KGAA-2044869

PATIENT
  Age: 32 Year
  Sex: Female

DRUGS (2)
  1. NOVOTHYROX [Suspect]
     Active Substance: LEVOTHYROXINE SODIUM
     Indication: POST PROCEDURAL HYPOTHYROIDISM
  2. NOVOTHYROX [Suspect]
     Active Substance: LEVOTHYROXINE SODIUM

REACTIONS (20)
  - Poor quality sleep [None]
  - Abdominal distension [None]
  - Personal relationship issue [None]
  - Palpitations [Not Recovered/Not Resolved]
  - Asocial behaviour [None]
  - Loss of personal independence in daily activities [None]
  - Eye pain [Not Recovered/Not Resolved]
  - Asthenia [Not Recovered/Not Resolved]
  - Decreased interest [None]
  - Blood thyroid stimulating hormone increased [Recovered/Resolved]
  - Malaise [None]
  - Mood swings [Not Recovered/Not Resolved]
  - Fatigue [None]
  - Irritability [None]
  - Dizziness [Not Recovered/Not Resolved]
  - Vision blurred [None]
  - Constipation [Not Recovered/Not Resolved]
  - Weight increased [Not Recovered/Not Resolved]
  - Apathy [None]
  - Alopecia [Not Recovered/Not Resolved]

NARRATIVE: CASE EVENT DATE: 201704
